FAERS Safety Report 8089138-8 (Version None)
Quarter: 2012Q1

REPORT INFORMATION
  Report Type: 
  Country: None (occurrence: None)
  Receive Date: 20120128
  Receipt Date: 20110708
  Transmission Date: 20120608
  Serious: Yes (Other)
  Sender: FDA-Public Use
  Company Number: US-ABBOTT-11P-163-0838185-00

PATIENT
  Sex: Female
  Weight: 54.48 kg

DRUGS (8)
  1. PENICILLIN [Suspect]
     Indication: APHONIA
  2. BIRTH CONTROL PILLS [Concomitant]
     Indication: CONTRACEPTION
  3. VITAMIN TAB [Concomitant]
     Indication: VITAMIN SUPPLEMENTATION
     Route: 048
  4. PENICILLIN [Suspect]
     Indication: OROPHARYNGEAL PAIN
     Dates: start: 20110301, end: 20110301
  5. HUMIRA [Suspect]
     Indication: CROHN'S DISEASE
     Route: 058
     Dates: start: 20100701, end: 20110508
  6. UNKNOWN ALLERGY MEDICATION [Concomitant]
     Indication: HYPERSENSITIVITY
  7. HUMIRA [Suspect]
     Route: 058
     Dates: start: 20110622
  8. PENICILLIN [Suspect]
     Indication: NASOPHARYNGITIS

REACTIONS (8)
  - TOOTH INFECTION [None]
  - TOOTHACHE [None]
  - RASH GENERALISED [None]
  - INJECTION SITE HAEMATOMA [None]
  - NASOPHARYNGITIS [None]
  - OROPHARYNGEAL PAIN [None]
  - APHONIA [None]
  - RESPIRATORY TRACT CONGESTION [None]
